FAERS Safety Report 6232115-X (Version None)
Quarter: 2009Q2

REPORT INFORMATION
  Report Type: 
  Country: None (occurrence: None)
  Receive Date: 20090616
  Receipt Date: 20090610
  Transmission Date: 20091009
  Serious: Yes (Other)
  Sender: FDA-Public Use
  Company Number: US-JNJCH-2009016107

PATIENT
  Age: 22 Year
  Sex: Female
  Weight: 70.3 kg

DRUGS (1)
  1. NEOSPORIN [Suspect]
     Indication: TATTOO
     Dosage: TEXT:UNSPECIFIED TO COVER TATTO ONCE
     Route: 061
     Dates: start: 20090101, end: 20090101

REACTIONS (2)
  - ANAPHYLACTIC REACTION [None]
  - OFF LABEL USE [None]
